FAERS Safety Report 7900843-3 (Version None)
Quarter: 2011Q4

REPORT INFORMATION
  Report Type: 
  Country: None (occurrence: None)
  Receive Date: 20111108
  Receipt Date: 20111108
  Transmission Date: 20120403
  Serious: Yes (Hospitalization)
  Sender: FDA-Public Use
  Company Number: None

PATIENT
  Age: 85 Year
  Sex: Female
  Weight: 61 kg

DRUGS (6)
  1. CHOLECALCIFEROL [Concomitant]
     Route: 048
  2. PANTOPRAZOLE [Concomitant]
     Route: 048
  3. CARVEDILOL [Concomitant]
     Route: 048
  4. WARFARIN SODIUM [Suspect]
     Indication: ARRHYTHMIA
     Dosage: UNKNOWN
     Route: 048
  5. FLUTICASONE/SALMETEROL 250/50 [Concomitant]
     Route: 048
  6. SIMVASTATIN [Concomitant]
     Route: 048

REACTIONS (7)
  - HAEMORRHAGE [None]
  - ANAEMIA [None]
  - RENAL FAILURE ACUTE [None]
  - ILEUS [None]
  - INTERNATIONAL NORMALISED RATIO INCREASED [None]
  - ABDOMINAL WALL HAEMATOMA [None]
  - PNEUMONIA [None]
